FAERS Safety Report 6451335-2 (Version None)
Quarter: 2009Q4

REPORT INFORMATION
  Report Type: 
  Country: None (occurrence: None)
  Receive Date: 20091120
  Receipt Date: 20091120
  Transmission Date: 20100525
  Serious: Yes (Other)
  Sender: FDA-Public Use
  Company Number: None

PATIENT
  Age: 14 Year
  Sex: Female
  Weight: 53.0709 kg

DRUGS (3)
  1. VIDEX EC [Suspect]
     Indication: HIV INFECTION
     Dosage: DAILY
  2. KALETRA [Concomitant]
  3. ABACAVIR [Concomitant]

REACTIONS (2)
  - HEADACHE [None]
  - PRODUCT SUBSTITUTION ISSUE [None]
